FAERS Safety Report 16963944 (Version 1)
Quarter: 2019Q4

REPORT INFORMATION
  Report Type: Spontaneous
  Country: PL (occurrence: PL)
  Receive Date: 20191026
  Receipt Date: 20191026
  Transmission Date: 20200122
  Serious: Yes (Other)
  Sender: FDA-Public Use
  Company Number: PL-EMD SERONO-E2B_90071713

PATIENT
  Age: 58 Year
  Sex: Female
  Weight: 103 kg

DRUGS (5)
  1. GLUCOPHAGE XR [Suspect]
     Active Substance: METFORMIN HYDROCHLORIDE
     Indication: TYPE 2 DIABETES MELLITUS
     Route: 048
  2. BISOCARD [Concomitant]
     Active Substance: BISOPROLOL
     Indication: ARRHYTHMIA
  3. LETROX [Concomitant]
     Active Substance: LEVOTHYROXINE SODIUM
     Indication: HYPOTHYROIDISM
     Route: 048
  4. XALATAN [Concomitant]
     Active Substance: LATANOPROST
     Indication: GLAUCOMA
  5. TELMIX [Concomitant]
     Indication: ARRHYTHMIA

REACTIONS (3)
  - Feeling hot [Recovering/Resolving]
  - Liver function test increased [Recovering/Resolving]
  - Hepatic pain [Recovering/Resolving]
